FAERS Safety Report 4537365-6 (Version None)
Quarter: 2004Q4

REPORT INFORMATION
  Report Type: 
  Country: None (occurrence: None)
  Receive Date: 20041223
  Receipt Date: 20041216
  Transmission Date: 20050328
  Serious: Yes (Other)
  Sender: FDA-Public Use
  Company Number: CA-ABBOTT-04P-028-0284108-00

PATIENT
  Sex: Male
  Weight: 83.082 kg

DRUGS (4)
  1. TRANDOLAPRIL [Suspect]
     Indication: HYPERTENSION
     Route: 048
     Dates: start: 20040826
  2. METFORMIN HCL [Concomitant]
     Indication: DIABETES MELLITUS
     Route: 048
     Dates: start: 20031201
  3. RASUVHSTATIN CALCIUM [Concomitant]
     Indication: HYPERLIPIDAEMIA
     Route: 048
     Dates: start: 20041205
  4. NIFEDIPINE [Concomitant]
     Indication: HYPERTENSION
     Route: 048
     Dates: start: 20040220

REACTIONS (10)
  - ADENOCARCINOMA [None]
  - ANAEMIA [None]
  - ANOREXIA [None]
  - BOWEL MOVEMENT IRREGULARITY [None]
  - METASTASES TO LIVER [None]
  - METASTASES TO LYMPH NODES [None]
  - METASTATIC NEOPLASM [None]
  - UNEVALUABLE EVENT [None]
  - VOMITING [None]
  - WEIGHT DECREASED [None]
